FAERS Safety Report 4767369-X (Version None)
Quarter: 2005Q3

REPORT INFORMATION
  Report Type: 
  Country: None (occurrence: None)
  Receive Date: 20050913
  Receipt Date: 20050906
  Transmission Date: 20060218
  Serious: Yes (Hospitalization)
  Sender: FDA-Public Use
  Company Number: US-ROCHE-416621

PATIENT
  Age: 57 Year
  Sex: Female
  Weight: 70.3 kg

DRUGS (5)
  1. PEG-INTERFERON ALFA 2A (RO 25-8310) [Suspect]
     Route: 058
     Dates: end: 20050829
  2. RIBAVIRIN [Suspect]
     Route: 048
     Dates: end: 20050829
  3. LEXAPRO [Concomitant]
     Dates: start: 20041206
  4. BENADRYL [Concomitant]
     Dates: start: 20030615
  5. IBUPROFEN [Concomitant]
     Dates: start: 20041129

REACTIONS (3)
  - DEHYDRATION [None]
  - OTITIS EXTERNA [None]
  - VERTIGO [None]
